FAERS Safety Report 9762774 (Version 1)
Quarter: 2013Q4

REPORT INFORMATION
  Report Type: Spontaneous
  Country: DK (occurrence: CA)
  Receive Date: 20131216
  Receipt Date: 20131216
  Transmission Date: 20140711
  Serious: Yes (Hospitalization)
  Sender: FDA-Public Use
  Company Number: CA-FRI-1000052295

PATIENT
  Age: 0 Day
  Sex: Male
  Weight: 2.9 kg

DRUGS (1)
  1. CELEXA [Suspect]
     Route: 064
     Dates: end: 20050827

REACTIONS (8)
  - Cardiac murmur [Recovered/Resolved]
  - Irritability [Unknown]
  - Neonatal disorder [Unknown]
  - Screaming [Unknown]
  - Feeding disorder neonatal [Unknown]
  - Cow^s milk intolerance [Unknown]
  - Lactose intolerance [Unknown]
  - Foetal exposure during pregnancy [Unknown]
